FAERS Safety Report 13129147 (Version 1)
Quarter: 2017Q1

REPORT INFORMATION
  Report Type: Spontaneous
  Country: US (occurrence: US)
  Receive Date: 20170117
  Receipt Date: 20170117
  Transmission Date: 20170428
  Serious: Yes (Death)
  Sender: FDA-Public Use
  Company Number: None

PATIENT
  Age: 90 Year
  Sex: Male

DRUGS (1)
  1. IMATINIB 400MG RANBAXY [Suspect]
     Active Substance: IMATINIB
     Indication: MALAISE
     Route: 048
     Dates: start: 20120709, end: 20170105

REACTIONS (3)
  - Cardiac failure [None]
  - Cholecystitis infective [None]
  - Hernia [None]

NARRATIVE: CASE EVENT DATE: 20170112
